FAERS Safety Report 25210524 (Version 1)
Quarter: 2025Q2

REPORT INFORMATION
  Report Type: Spontaneous
  Country: US (occurrence: US)
  Receive Date: 20250417
  Receipt Date: 20250417
  Transmission Date: 20250716
  Serious: No
  Sender: SANOFI AVENTIS
  Company Number: US-SANOFI-02489594

PATIENT
  Age: 82 Year
  Sex: Male

DRUGS (1)
  1. LANTUS SOLOSTAR [Suspect]
     Active Substance: INSULIN GLARGINE
     Indication: Type 2 diabetes mellitus
     Dosage: MAXIMUM OF 80 UNITS; USUALLY 40 UNITS
     Route: 065

REACTIONS (3)
  - Visual impairment [Unknown]
  - Product storage error [Unknown]
  - Intentional product misuse [Unknown]
